FAERS Safety Report 8070726-X (Version None)
Quarter: 2012Q1

REPORT INFORMATION
  Report Type: 
  Country: None (occurrence: None)
  Receive Date: 20120125
  Receipt Date: 20120118
  Transmission Date: 20120608
  Serious: Yes (Life-Threatening, Other)
  Sender: FDA-Public Use
  Company Number: US-JNJFOC-20111206386

PATIENT
  Sex: Female
  Weight: 61.24 kg

DRUGS (11)
  1. EFFEXOR [Concomitant]
     Indication: ANXIETY
  2. TRICOR [Concomitant]
     Indication: BLOOD CHOLESTEROL
  3. ARIMIDEX [Concomitant]
  4. XARELTO [Suspect]
     Indication: KNEE ARTHROPLASTY
     Route: 048
     Dates: start: 20111207, end: 20111209
  5. KLONOPIN [Concomitant]
     Indication: ANXIETY
  6. ACTONEL [Concomitant]
     Indication: OSTEOPOROSIS
  7. PROTONIX [Concomitant]
     Indication: GASTROOESOPHAGEAL REFLUX DISEASE
  8. LIPITOR [Concomitant]
     Indication: BLOOD CHOLESTEROL INCREASED
  9. ASPIRIN [Concomitant]
  10. COLACE [Concomitant]
  11. MULTIPLE VITAMINS [Concomitant]

REACTIONS (3)
  - PULMONARY EMBOLISM [None]
  - PRODUCT QUALITY ISSUE [None]
  - DEEP VEIN THROMBOSIS [None]
